FAERS Safety Report 17666433 (Version 3)
Quarter: 2020Q2

REPORT INFORMATION
  Report Type: Spontaneous
  Country: CN (occurrence: CN)
  Receive Date: 20200414
  Receipt Date: 20200430
  Transmission Date: 20200713
  Serious: Yes (Death)
  Sender: FDA-Public Use
  Company Number: CN-PFIZER INC-2020149360

PATIENT
  Age: 72 Year
  Sex: Female

DRUGS (9)
  1. MEROPENEM. [Suspect]
     Active Substance: MEROPENEM
     Indication: ANTI-INFECTIVE THERAPY
  2. VORICONAZOLE. [Suspect]
     Active Substance: VORICONAZOLE
     Indication: ACUTE RESPIRATORY DISTRESS SYNDROME
  3. VORICONAZOLE. [Suspect]
     Active Substance: VORICONAZOLE
     Indication: CEREBRAL ASPERGILLOSIS
  4. MEROPENEM. [Suspect]
     Active Substance: MEROPENEM
     Indication: THERAPEUTIC PROCEDURE
     Dosage: UNK
     Dates: start: 200510
  5. MEROPENEM. [Suspect]
     Active Substance: MEROPENEM
     Indication: IDIOPATHIC INTRACRANIAL HYPERTENSION
  6. TINIDAZOLE. [Suspect]
     Active Substance: TINIDAZOLE
     Indication: ANTI-INFECTIVE THERAPY
  7. VORICONAZOLE. [Suspect]
     Active Substance: VORICONAZOLE
     Indication: BRONCHOPULMONARY ASPERGILLOSIS
     Dosage: UNK
     Route: 065
     Dates: start: 20051026
  8. TINIDAZOLE. [Suspect]
     Active Substance: TINIDAZOLE
     Indication: IDIOPATHIC INTRACRANIAL HYPERTENSION
     Dosage: UNK
     Dates: start: 200510
  9. TINIDAZOLE. [Suspect]
     Active Substance: TINIDAZOLE
     Indication: THERAPEUTIC PROCEDURE

REACTIONS (1)
  - Drug ineffective [Fatal]

NARRATIVE: CASE EVENT DATE: 200510
